FAERS Safety Report 7364144-7 (Version None)
Quarter: 2011Q1

REPORT INFORMATION
  Report Type: 
  Country: None (occurrence: None)
  Receive Date: 20110321
  Receipt Date: 20110316
  Transmission Date: 20110831
  Serious: Yes (Death, Hospitalization, Other)
  Sender: FDA-Public Use
  Company Number: PHHY2011ES21045

PATIENT
  Age: 86 Year
  Sex: Female

DRUGS (5)
  1. INSULIN [Concomitant]
  2. CO-DIOVAN [Suspect]
     Indication: HYPERTENSION
     Dosage: 80 MG, DAILY
     Route: 048
     Dates: start: 20101115
  3. PREGABALIN [Concomitant]
  4. CALCIUM [Concomitant]
  5. SEGURIL [Interacting]
     Indication: HYPERTENSION
     Dosage: 40 MG, DAILY
     Route: 048
     Dates: start: 20091101

REACTIONS (4)
  - HYPONATRAEMIA [None]
  - DEATH [None]
  - DRUG INTERACTION [None]
  - UROSEPSIS [None]
